FAERS Safety Report 8758206 (Version 1)
Quarter: 2012Q4

REPORT INFORMATION
  Report Type: 
  Country: AU (occurrence: AU)
  Receive Date: 20120828
  Receipt Date: 20120828
  Transmission Date: 20130627
  Serious: Yes (Hospitalization)
  Sender: FDA-Public Use
  Company Number: AU-ASTRAZENECA-2012SE59978

PATIENT
  Age: 24 Month
  Sex: Male

DRUGS (1)
  1. TICAGRELOR [Suspect]
     Route: 048
     Dates: start: 20120819, end: 20120819

REACTIONS (1)
  - Accidental overdose [Recovering/Resolving]
